FAERS Safety Report 13921721 (Version 1)
Quarter: 2017Q3

REPORT INFORMATION
  Report Type: Spontaneous
  Country: US (occurrence: None)
  Receive Date: 20170830
  Receipt Date: 20170830
  Transmission Date: 20171127
  Serious: Yes (Other)
  Sender: FDA-Public Use
  Company Number: None

PATIENT
  Age: 31 Year
  Sex: Female
  Weight: 83.01 kg

DRUGS (1)
  1. SUBOXONE [Suspect]
     Active Substance: BUPRENORPHINE HYDROCHLORIDE\NALOXONE HYDROCHLORIDE
     Dosage: 8/12 MG DAILY SL  OR?812 MG?
     Route: 060

REACTIONS (3)
  - Rash [None]
  - Drug hypersensitivity [None]
  - Discomfort [None]

NARRATIVE: CASE EVENT DATE: 20150612
